FAERS Safety Report 5823060-X (Version None)
Quarter: 2008Q3

REPORT INFORMATION
  Report Type: 
  Country: None (occurrence: None)
  Receive Date: 20080724
  Receipt Date: 20080724
  Transmission Date: 20090109
  Serious: Yes (Life-Threatening, Other)
  Sender: FDA-Public Use
  Company Number: None

PATIENT
  Age: 64 Year
  Sex: Male
  Weight: 101.6057 kg

DRUGS (9)
  1. CHANTIX [Suspect]
     Indication: SMOKING CESSATION THERAPY
     Dosage: 1 MG ORALLY
     Route: 048
     Dates: start: 20071201, end: 20080628
  2. LISINOPRIL [Concomitant]
  3. ZOCOR [Concomitant]
  4. COUMADIN [Concomitant]
  5. EYE-VITS [Concomitant]
  6. FISH OIL [Concomitant]
  7. CYMBALTA [Concomitant]
  8. LYRICA [Concomitant]
  9. TYLENOL [Concomitant]

REACTIONS (21)
  - ABNORMAL BEHAVIOUR [None]
  - AGGRESSION [None]
  - ANGER [None]
  - CHEST PAIN [None]
  - CRYING [None]
  - DRUG INEFFECTIVE [None]
  - FATIGUE [None]
  - FEELING OF DESPAIR [None]
  - HOSTILITY [None]
  - HYPERKINESIA [None]
  - INSOMNIA [None]
  - MAJOR DEPRESSION [None]
  - MENTAL IMPAIRMENT [None]
  - MOOD SWINGS [None]
  - NIGHTMARE [None]
  - PARANOIA [None]
  - PSYCHOMOTOR HYPERACTIVITY [None]
  - RESTLESSNESS [None]
  - SUICIDAL IDEATION [None]
  - TREMOR [None]
  - VIOLENCE-RELATED SYMPTOM [None]
